FAERS Safety Report 24684177 (Version 3)
Quarter: 2025Q1

REPORT INFORMATION
  Report Type: Report from Study
  Country: IN (occurrence: IN)
  Receive Date: 20241202
  Receipt Date: 20250218
  Transmission Date: 20250408
  Serious: Yes (Hospitalization, Other)
  Sender: ROCHE
  Company Number: IN-ROCHE-3573871

PATIENT
  Age: 39 Year
  Sex: Female

DRUGS (1)
  1. KADCYLA [Suspect]
     Active Substance: ADO-TRASTUZUMAB EMTANSINE
     Indication: Breast cancer metastatic
     Route: 040
     Dates: start: 20230715

REACTIONS (4)
  - Osteomyelitis [Unknown]
  - Hand fracture [Unknown]
  - Skin injury [Unknown]
  - Bone neoplasm [Unknown]

NARRATIVE: CASE EVENT DATE: 20250108
